FAERS Safety Report 17850694 (Version 1)
Quarter: 2020Q2

REPORT INFORMATION
  Report Type: Spontaneous
  Country: US (occurrence: US)
  Receive Date: 20200602
  Receipt Date: 20200602
  Transmission Date: 20200714
  Serious: No
  Sender: FDA-Public Use
  Company Number: US-HORIZON-PRO-0118-2020

PATIENT
  Sex: Male

DRUGS (3)
  1. CALCITRIOL. [Concomitant]
     Active Substance: CALCITRIOL
  2. RENAGEL [Concomitant]
     Active Substance: SEVELAMER HYDROCHLORIDE
  3. PROCYSBI [Suspect]
     Active Substance: CYSTEAMINE BITARTRATE
     Indication: CYSTINOSIS

REACTIONS (3)
  - Blood calcium increased [Unknown]
  - Blood phosphorus abnormal [Unknown]
  - Blood parathyroid hormone decreased [Unknown]
